FAERS Safety Report 9352540 (Version 1)
Quarter: 2013Q2

REPORT INFORMATION
  Report Type: Spontaneous
  Country: US (occurrence: US)
  Receive Date: 20130618
  Receipt Date: 20130618
  Transmission Date: 20140414
  Serious: No
  Sender: FDA-Public Use
  Company Number: US-009507513-1306USA006402

PATIENT
  Sex: Female
  Weight: 79.37 kg

DRUGS (9)
  1. VICTRELIS [Suspect]
     Indication: HEPATITIS C
     Dosage: 4 CAPSULES BY MOUTH EVERY 8 HOURS
     Route: 048
  2. PEGASYS [Suspect]
     Dosage: UNK
  3. RIBAPAK [Suspect]
     Dosage: 800 DF, QD
  4. GABAPENTIN [Concomitant]
  5. AMITRIPTYLINE HYDROCHLORIDE [Concomitant]
  6. OMEGA-3 MARINE TRIGLYCERIDES [Concomitant]
  7. VITAMINS (UNSPECIFIED) [Concomitant]
  8. FLAXSEED [Concomitant]
  9. NEUPOGEN [Concomitant]

REACTIONS (3)
  - White blood cell count decreased [Unknown]
  - Rash [Unknown]
  - Pruritus [Unknown]
